FAERS Safety Report 24549911 (Version 1)
Quarter: 2024Q4

REPORT INFORMATION
  Report Type: Report from Study
  Country: US (occurrence: US)
  Receive Date: 20241025
  Receipt Date: 20241025
  Transmission Date: 20250115
  Serious: Yes (Hospitalization)
  Sender: ALNYLAM PHARMACEUTICALS
  Company Number: US-ALNYLAM PHARMACEUTICALS, INC.-ALN-2024-005854

PATIENT

DRUGS (1)
  1. OXLUMO [Suspect]
     Active Substance: LUMASIRAN
     Indication: Product used for unknown indication
     Dosage: 264.6 MILLIGRAM, MONTHLY
     Route: 058

REACTIONS (2)
  - Cardiovascular evaluation [Unknown]
  - Catheter removal [Unknown]

NARRATIVE: CASE EVENT DATE: 20240101
